FAERS Safety Report 15980706 (Version 1)
Quarter: 2019Q1

REPORT INFORMATION
  Report Type: Report from Study
  Country: FR (occurrence: FR)
  Receive Date: 20190219
  Receipt Date: 20190219
  Transmission Date: 20190418
  Serious: Yes (Hospitalization)
  Sender: FDA-Public Use
  Company Number: FR-BIOVITRUM-2019FR0277

PATIENT
  Age: 2 Year
  Sex: Male
  Weight: 12.9 kg

DRUGS (6)
  1. KINERET [Suspect]
     Active Substance: ANAKINRA
     Route: 058
     Dates: start: 20170503
  2. KINERET [Suspect]
     Active Substance: ANAKINRA
     Route: 058
     Dates: start: 20170502
  3. NUBAIN [Concomitant]
     Active Substance: NALBUPHINE HYDROCHLORIDE
  4. PARACETAMOL [Concomitant]
     Active Substance: ACETAMINOPHEN
  5. ASPIRINE [Concomitant]
     Active Substance: ASPIRIN
  6. KINERET [Suspect]
     Active Substance: ANAKINRA
     Indication: KAWASAKI^S DISEASE
     Route: 058
     Dates: start: 20170501

REACTIONS (1)
  - Coronary artery dilatation [Recovered/Resolved with Sequelae]

NARRATIVE: CASE EVENT DATE: 20170505
